FAERS Safety Report 9372455 (Version 1)
Quarter: 2013Q2

REPORT INFORMATION
  Report Type: Report from Study
  Country: US (occurrence: US)
  Receive Date: 20130627
  Receipt Date: 20130627
  Transmission Date: 20140414
  Serious: Yes (Other)
  Sender: FDA-Public Use
  Company Number: US-MYLANLABS-2012S1024827

PATIENT
  Age: 26 Year
  Sex: Male

DRUGS (2)
  1. CLOZAPINE TABLETS [Suspect]
     Indication: MOOD DISORDER DUE TO A GENERAL MEDICAL CONDITION
     Dosage: 25MG IN MORNING DAILY 75MG AT BEDTIME DAILY
     Route: 048
     Dates: start: 20121107, end: 20121123
  2. CLOZAPINE TABLETS [Suspect]
     Indication: MOOD DISORDER DUE TO A GENERAL MEDICAL CONDITION
     Dosage: 25MG IN MORNING DAILY 75MG AT BEDTIME DAILY
     Route: 048
     Dates: start: 20121107, end: 20121123

REACTIONS (1)
  - Granulocytopenia [Recovered/Resolved]
